FAERS Safety Report 13646778 (Version 1)
Quarter: 2017Q2

REPORT INFORMATION
  Report Type: Spontaneous
  Country: US (occurrence: US)
  Receive Date: 20170612
  Receipt Date: 20170612
  Transmission Date: 20170830
  Serious: No
  Sender: FDA-Public Use
  Company Number: None

PATIENT
  Age: 60 Year
  Sex: Male

DRUGS (1)
  1. VIEKIRA XR [Suspect]
     Active Substance: DASABUVIR SODIUM MONOHYDRATE\OMBITASVIR HEMINONAHYDRATE\PARITAPREVIR DIHYDRATE\RITONAVIR
     Indication: MALAISE
     Route: 048
     Dates: start: 20170420

REACTIONS (4)
  - Weight decreased [None]
  - Decreased appetite [None]
  - Sleep disorder [None]
  - Muscular weakness [None]

NARRATIVE: CASE EVENT DATE: 20170501
